FAERS Safety Report 17545967 (Version 1)
Quarter: 2020Q1

REPORT INFORMATION
  Report Type: Spontaneous
  Country: US (occurrence: US)
  Receive Date: 20200316
  Receipt Date: 20200316
  Transmission Date: 20200409
  Serious: No
  Sender: FDA-Public Use
  Company Number: US-SHIRE-US202008520

PATIENT
  Sex: Male

DRUGS (1)
  1. CARBATROL [Suspect]
     Active Substance: CARBAMAZEPINE
     Indication: EPILEPSY
     Dosage: 300 MILLIGRAM
     Route: 065

REACTIONS (6)
  - Gait disturbance [Unknown]
  - Dizziness [Unknown]
  - Inability to afford medication [Unknown]
  - Feeling abnormal [Unknown]
  - Malaise [Unknown]
  - Thinking abnormal [Unknown]
